FAERS Safety Report 25790217 (Version 2)
Quarter: 2025Q3

REPORT INFORMATION
  Report Type: Spontaneous
  Country: US (occurrence: US)
  Receive Date: 20250911
  Receipt Date: 20250926
  Transmission Date: 20251021
  Serious: No
  Sender: APOTEX
  Company Number: US-APOTEX-2025AP029738

PATIENT
  Age: 69 Year
  Sex: Female

DRUGS (3)
  1. PENTOXIFYLLINE [Suspect]
     Active Substance: PENTOXIFYLLINE
     Indication: Segmented hyalinising vasculitis
     Dosage: 400 MILLIGRAM, BID
     Route: 065
     Dates: start: 202306, end: 202307
  2. CEPHALEXIN [Concomitant]
     Active Substance: CEPHALEXIN
     Indication: Segmented hyalinising vasculitis
     Dosage: 500 MILLIGRAM, QID
     Route: 065
  3. MUPIROCIN [Concomitant]
     Active Substance: MUPIROCIN
     Indication: Segmented hyalinising vasculitis
     Dosage: UNK, QD, APPLY 2-3 TIMES TO THE AFFECTED AREA
     Route: 061

REACTIONS (1)
  - Gastrooesophageal reflux disease [Unknown]

NARRATIVE: CASE EVENT DATE: 20230720
